FAERS Safety Report 19702620 (Version 3)
Quarter: 2021Q3

REPORT INFORMATION
  Report Type: Report from Study
  Country: None (occurrence: US)
  Receive Date: 20210815
  Receipt Date: 20210929
  Transmission Date: 20211014
  Serious: Yes (Other)
  Sender: FDA-Public Use
  Company Number: US-ABBVIE-21K-163-4036396-00

PATIENT
  Sex: Male

DRUGS (1)
  1. SKYRIZI [Suspect]
     Active Substance: RISANKIZUMAB-RZAA
     Indication: PSORIASIS
     Route: 058
     Dates: start: 202011

REACTIONS (8)
  - Exostosis [Unknown]
  - Limb operation [Recovering/Resolving]
  - Therapeutic response shortened [Not Recovered/Not Resolved]
  - Knee operation [Recovering/Resolving]
  - Sciatic nerve neuropathy [Unknown]
  - Headache [Unknown]
  - Psoriasis [Not Recovered/Not Resolved]
  - Foot deformity [Unknown]
